FAERS Safety Report 10185159 (Version 3)
Quarter: 2014Q2

REPORT INFORMATION
  Report Type: Spontaneous
  Country: DE (occurrence: DE)
  Receive Date: 20140521
  Receipt Date: 20140619
  Transmission Date: 20141212
  Serious: Yes (Hospitalization, Disabling)
  Sender: FDA-Public Use
  Company Number: GXKR2014DE001842

PATIENT
  Age: 52 Year
  Sex: Female

DRUGS (2)
  1. AZITHROMYCIN - 1 A PHARMA [Suspect]
     Indication: SINUSITIS
     Dosage: 500 MG, UKN
     Route: 048
     Dates: start: 20121214, end: 20121216
  2. LORAZEPAM [Concomitant]
     Dosage: 1-2  MG/D FOR MORE THAN 1 YEAR
     Route: 048

REACTIONS (21)
  - Depersonalisation [Not Recovered/Not Resolved]
  - Dyspnoea [Not Recovered/Not Resolved]
  - Chest pain [Not Recovered/Not Resolved]
  - Parosmia [Not Recovered/Not Resolved]
  - Head discomfort [Not Recovered/Not Resolved]
  - Depression [Not Recovered/Not Resolved]
  - Visual impairment [Not Recovered/Not Resolved]
  - Tunnel vision [Not Recovered/Not Resolved]
  - Dizziness [Not Recovered/Not Resolved]
  - Disorientation [Not Recovered/Not Resolved]
  - Illusion [Not Recovered/Not Resolved]
  - Disturbance in attention [Not Recovered/Not Resolved]
  - Anxiety [Not Recovered/Not Resolved]
  - Tongue movement disturbance [Not Recovered/Not Resolved]
  - Pharyngeal disorder [Not Recovered/Not Resolved]
  - Laryngeal discomfort [Not Recovered/Not Resolved]
  - Abdominal discomfort [Not Recovered/Not Resolved]
  - Nausea [Not Recovered/Not Resolved]
  - Vomiting [Not Recovered/Not Resolved]
  - Blood pressure increased [Not Recovered/Not Resolved]
  - Impaired work ability [Not Recovered/Not Resolved]
